FAERS Safety Report 9213000 (Version 1)
Quarter: 2013Q1

REPORT INFORMATION
  Report Type: Spontaneous
  Country: US (occurrence: None)
  Receive Date: 20120820
  Receipt Date: 20120820
  Transmission Date: 20140127
  Serious: No
  Sender: FDA-Public Use
  Company Number: 1000036635

PATIENT
  Age: 81 Year
  Sex: Female

DRUGS (8)
  1. VIIBRYD [Suspect]
     Indication: DEPRESSION
     Dosage: 10 MG 1 IN 1 D
     Route: 048
     Dates: start: 20120606, end: 20120612
  2. LIPITOR [Concomitant]
  3. BENAZEPRIL (BENAZEPRIL) (ENAZEPRIL) [Concomitant]
  4. AMLODIPINE (AMLODIPINE) (AMLODIPINE) [Concomitant]
  5. FUROSEMIDE [Concomitant]
  6. METOPROLOL (METOPROLOL) (METOPROLOL) [Concomitant]
  7. LEVOTHYROXINE (LEVOTHYROXINE SODIUM) (LEVOTHYROXINE SODIUM) [Concomitant]
  8. NITROFURANTOIN (NITROFURANTOIN) (NITROFURANRTOIN) [Concomitant]

REACTIONS (2)
  - Oedema [None]
  - Somnolence [None]
